FAERS Safety Report 8121589 (Version 3)
Quarter: 2013Q2

REPORT INFORMATION
  Report Type: Spontaneous
  Country: US (occurrence: US)
  Receive Date: 20110906
  Receipt Date: 20130503
  Transmission Date: 20140414
  Serious: Yes (Hospitalization)
  Sender: FDA-Public Use
  Company Number: US-GLAXOSMITHKLINE-A0918101A

PATIENT
  Age: 72 Year
  Sex: Male

DRUGS (1)
  1. AVANDIA [Suspect]
     Indication: DIABETES MELLITUS
     Dosage: 4MG PER DAY
     Route: 048

REACTIONS (9)
  - Cardiac failure congestive [Not Recovered/Not Resolved]
  - Myocardial infarction [Unknown]
  - Transient ischaemic attack [Unknown]
  - Ischaemic cardiomyopathy [Unknown]
  - Dyspnoea [Unknown]
  - Muscular weakness [Unknown]
  - Fatigue [Unknown]
  - Swelling [Unknown]
  - Weight increased [Unknown]
